FAERS Safety Report 12715409 (Version 5)
Quarter: 2019Q2

REPORT INFORMATION
  Report Type: Report from Study
  Country: US (occurrence: US)
  Receive Date: 20160906
  Receipt Date: 20190515
  Transmission Date: 20190711
  Serious: Yes (Other)
  Sender: FDA-Public Use
  Company Number: US-CIPLA LTD.-2016US17777

PATIENT

DRUGS (11)
  1. ZYRTEC [Concomitant]
     Active Substance: CETIRIZINE HYDROCHLORIDE
     Indication: SEASONAL ALLERGY
     Dosage: 10 MG, PRN - AS NEEDED, PT WILL WITH HOLD FOR 72 HOURS PRIOR TO VISIT
     Route: 048
     Dates: start: 1996
  2. IBUPROFEN. [Concomitant]
     Active Substance: IBUPROFEN
     Indication: HEADACHE
     Dosage: 400 MG, LESS THEN 2 X MONTHLY
     Route: 048
     Dates: start: 2006
  3. BLINDED SALBUTAMOL [Suspect]
     Active Substance: ALBUTEROL
     Indication: ASTHMA
     Dosage: UNK
  4. BLINDED SALBUTAMOL [Suspect]
     Active Substance: ALBUTEROL
     Indication: ASTHMA
     Dosage: UNK
  5. BLINDED SALBUTAMOL [Suspect]
     Active Substance: ALBUTEROL
     Dosage: UNK, VISIT 2
     Dates: start: 20160816
  6. PLACEBO [Suspect]
     Active Substance: UNSPECIFIED INGREDIENT
     Dosage: UNK
     Route: 065
  7. METHACHOLINE. [Suspect]
     Active Substance: METHACHOLINE
     Indication: PULMONARY FUNCTION CHALLENGE TEST
     Dosage: UNK
     Route: 065
     Dates: start: 20160810
  8. SALBUTAMOL [Concomitant]
     Active Substance: ALBUTEROL
     Dosage: 180 MCG, LESS THEN 3X WEEKLY, PRN
     Dates: start: 20161008
  9. SALBUTAMOL [Concomitant]
     Active Substance: ALBUTEROL
     Indication: ASTHMA
     Dosage: 180 MCG, LESS THEN 3 X WEEKLY, PRN
     Dates: start: 1999, end: 20161008
  10. LO-OGESTRIL [Concomitant]
     Indication: CONTRACEPTION
     Dosage: 1 EACH, QD
     Route: 048
     Dates: start: 201602
  11. BLINDED SALBUTAMOL [Suspect]
     Active Substance: ALBUTEROL
     Dosage: UNK, VISIT 2
     Dates: start: 20160816

REACTIONS (3)
  - Exposure during pregnancy [Unknown]
  - Pregnancy test positive [Unknown]
  - Bronchospasm [Recovered/Resolved]

NARRATIVE: CASE EVENT DATE: 20160810
